FAERS Safety Report 24434601 (Version 1)
Quarter: 2024Q4

REPORT INFORMATION
  Report Type: Spontaneous
  Country: US (occurrence: US)
  Receive Date: 20241014
  Receipt Date: 20241014
  Transmission Date: 20250115
  Serious: No
  Sender: SANOFI AVENTIS
  Company Number: US-SA-2024SA293916

PATIENT
  Sex: Female
  Weight: 52.27 kg

DRUGS (18)
  1. DUPIXENT [Suspect]
     Active Substance: DUPILUMAB
     Indication: Dermatitis atopic
     Dosage: 300.000MG QOW
     Route: 058
  2. MUPIROCIN [Concomitant]
     Active Substance: MUPIROCIN
     Dosage: UNK
  3. STOOL SOFTENER (DOCUSATE) [Concomitant]
     Active Substance: DOCUSATE
  4. ATORVASTATIN CALCIUM [Concomitant]
     Active Substance: ATORVASTATIN CALCIUM
  5. MINERALS\VITAMINS [Concomitant]
     Active Substance: MINERALS\VITAMINS
  6. THERMOTABS [Concomitant]
     Dosage: 287-180-15
  7. ESTRACE [Concomitant]
     Active Substance: ESTRADIOL
  8. CLOBETASOL [Concomitant]
     Active Substance: CLOBETASOL
  9. HYALURONIC ACID SODIUM [Concomitant]
  10. CYANOCOBALAMIN [Concomitant]
     Active Substance: CYANOCOBALAMIN
  11. IRON [Concomitant]
     Active Substance: IRON
  12. CALCIUM CITRATE [Concomitant]
     Active Substance: CALCIUM CITRATE
  13. VITAMINS [Concomitant]
     Active Substance: VITAMINS
  14. VITAMIN D3 [Concomitant]
     Active Substance: CHOLECALCIFEROL
     Dosage: UNK
  15. VITAMIN C [Concomitant]
     Active Substance: ASCORBIC ACID
  16. SYNTHROID [Concomitant]
     Active Substance: LEVOTHYROXINE SODIUM
  17. WELLBUTRIN [Concomitant]
     Active Substance: BUPROPION HYDROCHLORIDE
     Dosage: UNK, Q12H
  18. TEGRETOL [Concomitant]
     Active Substance: CARBAMAZEPINE
     Dosage: UNK

REACTIONS (1)
  - Allergic reaction to excipient [Unknown]
